FAERS Safety Report 10340311 (Version 1)
Quarter: 2014Q3

REPORT INFORMATION
  Report Type: Spontaneous
  Country: FR (occurrence: FR)
  Receive Date: 20140724
  Receipt Date: 20140724
  Transmission Date: 20150326
  Serious: Yes (Hospitalization)
  Sender: FDA-Public Use
  Company Number: FR-PFIZER INC-2014200806

PATIENT
  Age: 50 Year
  Sex: Male
  Weight: 82 kg

DRUGS (5)
  1. FORTUM [Suspect]
     Active Substance: CEFTAZIDIME
     Indication: INFLAMMATION
     Dosage: 1 G, 3X/DAY
     Route: 042
     Dates: start: 20140213, end: 20140215
  2. FORTUM [Suspect]
     Active Substance: CEFTAZIDIME
     Indication: PYREXIA
  3. TRIFLUCAN [Suspect]
     Active Substance: FLUCONAZOLE
     Dosage: UNK
     Route: 042
     Dates: start: 20140130, end: 20140213
  4. TAZOCILLINE [Suspect]
     Active Substance: PIPERACILLIN SODIUM\TAZOBACTAM SODIUM
     Indication: INFECTION
     Dosage: 4 G, 4X/DAY
     Route: 042
     Dates: start: 20140211, end: 20140213
  5. CLAMOXYL [Concomitant]
     Active Substance: AMOXICILLIN\CLAVULANIC ACID
     Indication: ANTIBIOTIC PROPHYLAXIS
     Dosage: UNK
     Dates: start: 20140130, end: 20140211

REACTIONS (3)
  - Mixed liver injury [Recovering/Resolving]
  - Drug reaction with eosinophilia and systemic symptoms [Recovering/Resolving]
  - Rash maculo-papular [Recovered/Resolved]

NARRATIVE: CASE EVENT DATE: 20140214
